FAERS Safety Report 4392413-1 (Version None)
Quarter: 2004Q3

REPORT INFORMATION
  Report Type: 
  Country: None (occurrence: None)
  Receive Date: 20040702
  Receipt Date: 20040413
  Transmission Date: 20050211
  Serious: Yes (Other)
  Sender: FDA-Public Use
  Company Number: 2004UW04162

PATIENT
  Age: 47 Year
  Sex: Female
  Weight: 98.4306 kg

DRUGS (4)
  1. CRESTOR [Suspect]
     Indication: BLOOD CHOLESTEROL INCREASED
     Dosage: 10 MG PO
     Route: 048
     Dates: start: 20040201
  2. PAXIL [Concomitant]
  3. ALTACE [Concomitant]
  4. ATENOLOL [Concomitant]

REACTIONS (6)
  - ARTHRALGIA [None]
  - CHEST PAIN [None]
  - CHILLS [None]
  - MYALGIA [None]
  - NAUSEA [None]
  - PARAESTHESIA ORAL [None]
